FAERS Safety Report 4951605-0 (Version None)
Quarter: 2006Q1

REPORT INFORMATION
  Report Type: 
  Country: None (occurrence: None)
  Receive Date: 20060317
  Receipt Date: 20060303
  Transmission Date: 20060701
  Serious: Yes (Hospitalization)
  Sender: FDA-Public Use
  Company Number: OXP20050002

PATIENT
  Age: 39 Year
  Sex: Female
  Weight: 79.8331 kg

DRUGS (3)
  1. OXAPROZIN [Suspect]
     Indication: BACK PAIN
     Dosage: 600 MG  PO
     Route: 048
     Dates: start: 20030723
  2. LISINOPRIL AND HYDROCHLOROTHIAZIDE [Suspect]
     Indication: HYPERTENSION
     Dosage: 1 TAB  DAILY  PO
     Route: 048
     Dates: start: 20030801
  3. CELEBREX [Suspect]
     Indication: ADNEXA UTERI PAIN
     Dosage: 200 MG  BID  PO
     Route: 048
     Dates: start: 20030716

REACTIONS (33)
  - ALANINE AMINOTRANSFERASE INCREASED [None]
  - ASPARTATE AMINOTRANSFERASE INCREASED [None]
  - BLOOD ALBUMIN DECREASED [None]
  - BLOOD ALKALINE PHOSPHATASE INCREASED [None]
  - BLOOD GLUCOSE INCREASED [None]
  - BLOOD POTASSIUM INCREASED [None]
  - CARDIAC MURMUR [None]
  - COUGH [None]
  - DIALYSIS [None]
  - DIARRHOEA [None]
  - GLOMERULONEPHRITIS RAPIDLY PROGRESSIVE [None]
  - HAEMATURIA [None]
  - HAEMOGLOBIN DECREASED [None]
  - HAPTOGLOBIN INCREASED [None]
  - HEPATIC FUNCTION ABNORMAL [None]
  - HYPERTENSION [None]
  - INFLUENZA LIKE ILLNESS [None]
  - IRON DEFICIENCY ANAEMIA [None]
  - LABORATORY TEST ABNORMAL [None]
  - ORAL INTAKE REDUCED [None]
  - PALLOR [None]
  - PHARYNGOLARYNGEAL PAIN [None]
  - PROTEIN TOTAL INCREASED [None]
  - PYREXIA [None]
  - RED BLOOD CELL COUNT DECREASED [None]
  - RED BLOOD CELL SEDIMENTATION RATE INCREASED [None]
  - RENAL FAILURE [None]
  - RENAL INJURY [None]
  - STAPHYLOCOCCAL INFECTION [None]
  - SYSTEMIC LUPUS ERYTHEMATOSUS RASH [None]
  - VIRAL PHARYNGITIS [None]
  - VOMITING [None]
  - WHITE BLOOD CELL COUNT INCREASED [None]
